FAERS Safety Report 22616620 (Version 1)
Quarter: 2023Q2

REPORT INFORMATION
  Report Type: Report from Study
  Country: US (occurrence: US)
  Receive Date: 20230619
  Receipt Date: 20230619
  Transmission Date: 20230721
  Serious: Yes (Other)
  Sender: FDA-Public Use
  Company Number: US-ABBVIE-4703924

PATIENT
  Age: 60 Year
  Sex: Female

DRUGS (1)
  1. SKYRIZI [Suspect]
     Active Substance: RISANKIZUMAB-RZAA
     Indication: Psoriasis
     Route: 058
     Dates: start: 20191201

REACTIONS (5)
  - Malignant melanoma [Recovered/Resolved]
  - Pruritus [Recovered/Resolved]
  - Psoriasis [Recovering/Resolving]
  - COVID-19 [Unknown]
  - Stress [Unknown]

NARRATIVE: CASE EVENT DATE: 20230127
